FAERS Safety Report 17408332 (Version 1)
Quarter: 2020Q1

REPORT INFORMATION
  Report Type: Report from Study
  Country: MX (occurrence: MX)
  Receive Date: 20200212
  Receipt Date: 20200212
  Transmission Date: 20200409
  Serious: Yes (Death, Other)
  Sender: FDA-Public Use
  Company Number: MX-ASTRAZENECA-2019SF83868

PATIENT
  Age: 41 Year
  Sex: Female
  Weight: 70 kg

DRUGS (1)
  1. FASLODEX [Suspect]
     Active Substance: FULVESTRANT
     Indication: BREAST CANCER FEMALE
     Dosage: 250MG / 5ML WITH 2 INJECTIONS INTRAMUSCULARLY EVERY MONTH
     Route: 030
     Dates: start: 20190610, end: 202001

REACTIONS (15)
  - Pulmonary oedema [Unknown]
  - Speech disorder [Unknown]
  - Parosmia [Unknown]
  - Malaise [Unknown]
  - Anaemia [Unknown]
  - Pain [Unknown]
  - Bedridden [Unknown]
  - General physical health deterioration [Unknown]
  - Death [Fatal]
  - Diplegia [Unknown]
  - Constipation [Unknown]
  - Emotional disorder [Unknown]
  - Vomiting [Unknown]
  - Nausea [Unknown]
  - Malignant neoplasm progression [Unknown]

NARRATIVE: CASE EVENT DATE: 2019
